FAERS Safety Report 6765048-0 (Version None)
Quarter: 2010Q2

REPORT INFORMATION
  Report Type: 
  Country: None (occurrence: None)
  Receive Date: 20100609
  Receipt Date: 20100609
  Transmission Date: 20101027
  Serious: Yes (Death, Hospitalization)
  Sender: FDA-Public Use
  Company Number: None

PATIENT
  Sex: Male
  Weight: 74.9 kg

DRUGS (2)
  1. DOCETAXEL [Suspect]
     Indication: NON-SMALL CELL LUNG CANCER
     Dosage: 35 MG/M2
     Dates: start: 20100415, end: 20100520
  2. AVASTIN [Suspect]
     Indication: NON-SMALL CELL LUNG CANCER
     Dosage: 10 MG/KG
     Dates: start: 20100414, end: 20100513

REACTIONS (6)
  - CARDIO-RESPIRATORY ARREST [None]
  - DECREASED APPETITE [None]
  - NON-SMALL CELL LUNG CANCER METASTATIC [None]
  - PNEUMONIA [None]
  - SEPTIC SHOCK [None]
  - UNRESPONSIVE TO STIMULI [None]
